FAERS Safety Report 20819972 (Version 4)
Quarter: 2022Q4

REPORT INFORMATION
  Report Type: Spontaneous
  Country: US (occurrence: US)
  Receive Date: 20220512
  Receipt Date: 20221202
  Transmission Date: 20230112
  Serious: Yes (Other)
  Sender: FDA-Public Use
  Company Number: US-PFIZER INC-202200641048

PATIENT
  Age: 59 Year
  Sex: Male

DRUGS (1)
  1. XELJANZ XR [Suspect]
     Active Substance: TOFACITINIB CITRATE
     Indication: Rheumatoid arthritis
     Dosage: 11 MG, 1X/DAY
     Route: 048
     Dates: start: 20211101, end: 20220802

REACTIONS (4)
  - Shoulder arthroplasty [Unknown]
  - Sinusitis [Unknown]
  - Nasopharyngitis [Unknown]
  - Ear pain [Unknown]

NARRATIVE: CASE EVENT DATE: 20220812
